FAERS Safety Report 24593601 (Version 2)
Quarter: 2024Q4

REPORT INFORMATION
  Report Type: Spontaneous
  Country: JP (occurrence: JP)
  Receive Date: 20241108
  Receipt Date: 20241219
  Transmission Date: 20250115
  Serious: Yes (Other)
  Sender: ROCHE
  Company Number: JP-CHUGAI-2024033064

PATIENT
  Age: 65 Year
  Sex: Female

DRUGS (2)
  1. VABYSMO [Suspect]
     Active Substance: FARICIMAB-SVOA
     Indication: Diabetic retinal oedema
     Dosage: UNK, STRENGTH 120 MG/ML
     Route: 050
  2. SODIUM IODIDE I-123 [Suspect]
     Active Substance: SODIUM IODIDE I-123
     Indication: Diabetic retinal oedema
     Dosage: UNK
     Route: 065

REACTIONS (6)
  - Rash [Recovered/Resolved]
  - Erythema [Recovered/Resolved]
  - Pruritus [Recovered/Resolved]
  - Swelling face [Recovered/Resolved]
  - Hyperhidrosis [Recovered/Resolved]
  - Headache [Recovered/Resolved]
